FAERS Safety Report 26169117 (Version 1)
Quarter: 2025Q4

REPORT INFORMATION
  Report Type: Spontaneous
  Country: US (occurrence: None)
  Receive Date: 20251216
  Receipt Date: 20251216
  Transmission Date: 20260118
  Serious: Yes (Other)
  Sender: FDA-CTU
  Company Number: None

PATIENT
  Sex: Male

DRUGS (8)
  1. LENALIDOMIDE [Suspect]
     Active Substance: LENALIDOMIDE
     Indication: Iron deficiency anaemia
     Dosage: FREQUENCY : DAILY;?FREQ: TAKE 1 CAPSULE DAILY BY MOUTH FOR 21 DAYS THEN OFF FOR 7 DAYS.
     Route: 048
  2. ACYCLOVIR [Concomitant]
     Active Substance: ACYCLOVIR
  3. LOSARTAN POTASSIUM [Concomitant]
     Active Substance: LOSARTAN POTASSIUM
  4. MORPHINE SUL TAB 15MG ER [Concomitant]
  5. NIFEDIPINE CAP 10MG [Concomitant]
  6. SMZ-TMP TAB 400-SOMG [Concomitant]
  7. XARELTO [Concomitant]
     Active Substance: RIVAROXABAN
  8. ZOLEDRONIC ACID [Concomitant]
     Active Substance: ZOLEDRONIC ACID

REACTIONS (2)
  - Myocardial infarction [None]
  - Therapy interrupted [None]
